FAERS Safety Report 8614061-7 (Version None)
Quarter: 2012Q3

REPORT INFORMATION
  Report Type: 
  Country: None (occurrence: None)
  Receive Date: 20120823
  Receipt Date: 20120802
  Transmission Date: 20120928
  Serious: Yes (Other)
  Sender: FDA-Public Use
  Company Number: US-009507513-1208USA004139

PATIENT

DRUGS (4)
  1. REBETOL [Suspect]
     Dosage: 200 MG, BID
     Route: 048
  2. PEG-INTRON [Suspect]
     Indication: HEPATITIS C
     Dosage: UNK
     Dates: start: 20120223
  3. REBETOL [Suspect]
     Indication: HEPATITIS C
     Dosage: 400 MG,
     Dates: start: 20120223
  4. VICTRELIS [Suspect]
     Indication: HEPATITIS C
     Dosage: UNK
     Dates: start: 20120322

REACTIONS (5)
  - WHITE BLOOD CELL COUNT DECREASED [None]
  - ASTHENIA [None]
  - NAUSEA [None]
  - RED BLOOD CELL COUNT DECREASED [None]
  - SOMNOLENCE [None]
